FAERS Safety Report 4886238-8 (Version None)
Quarter: 2006Q1

REPORT INFORMATION
  Report Type: 
  Country: None (occurrence: None)
  Receive Date: 20060118
  Receipt Date: 20060106
  Transmission Date: 20060701
  Serious: Yes (Hospitalization)
  Sender: FDA-Public Use
  Company Number: US200601001228

PATIENT
  Age: 77 Year
  Sex: Male

DRUGS (7)
  1. FORTEO [Suspect]
     Indication: OSTEOPOROSIS
     Dates: start: 20050601
  2. FORTEO [Concomitant]
  3. NEXIUM [Concomitant]
  4. ENALAPRIL MALEATE [Concomitant]
  5. AMBIEN [Concomitant]
  6. CALTRATE (CALCIUM CARBONATE) [Concomitant]
  7. OCUVITE (ASCORBIC ACID, RETINOL, TOCOPHEROL) [Concomitant]

REACTIONS (2)
  - FALL [None]
  - WRIST FRACTURE [None]
